FAERS Safety Report 24665258 (Version 1)
Quarter: 2024Q4

REPORT INFORMATION
  Report Type: Spontaneous
  Country: FR (occurrence: FR)
  Receive Date: 20241126
  Receipt Date: 20241126
  Transmission Date: 20250114
  Serious: Yes (Other)
  Sender: ACCORD
  Company Number: None

PATIENT
  Age: 56 Year
  Sex: Female
  Weight: 53 kg

DRUGS (7)
  1. FLUOROURACIL [Suspect]
     Active Substance: FLUOROURACIL
     Indication: Oesophageal adenocarcinoma
     Dates: start: 20240523
  2. OXALIPLATIN [Suspect]
     Active Substance: OXALIPLATIN
     Indication: Oesophageal adenocarcinoma
     Dates: start: 20240523, end: 20240523
  3. NIVOLUMAB [Suspect]
     Active Substance: NIVOLUMAB
     Indication: Oesophageal adenocarcinoma
     Dates: start: 20240606
  4. OXALIPLATIN [Suspect]
     Active Substance: OXALIPLATIN
     Indication: Oesophageal adenocarcinoma
     Dates: start: 20240606, end: 20240620
  5. OXALIPLATIN [Suspect]
     Active Substance: OXALIPLATIN
     Indication: Oesophageal adenocarcinoma
     Dates: start: 20240715, end: 20240918
  6. FLUOROURACIL [Suspect]
     Active Substance: FLUOROURACIL
     Indication: Oesophageal adenocarcinoma
     Dates: start: 20240523, end: 20240523
  7. FLUOROURACIL [Suspect]
     Active Substance: FLUOROURACIL
     Indication: Oesophageal adenocarcinoma
     Dates: start: 20240606, end: 20240918

REACTIONS (1)
  - Peripheral sensory neuropathy [Not Recovered/Not Resolved]

NARRATIVE: CASE EVENT DATE: 20240701
